FAERS Safety Report 9190828 (Version 1)
Quarter: 2013Q1

REPORT INFORMATION
  Report Type: Spontaneous
  Country: US (occurrence: US)
  Receive Date: 20130326
  Receipt Date: 20130326
  Transmission Date: 20140127
  Serious: Yes (Other)
  Sender: FDA-Public Use
  Company Number: US-GLAXOSMITHKLINE-A1016196A

PATIENT
  Age: 39 Year
  Sex: Male

DRUGS (5)
  1. LAMICTAL [Suspect]
     Indication: BIPOLAR DISORDER
     Dosage: 100MG UNKNOWN
     Route: 048
     Dates: start: 20121221
  2. DEPAKOTE [Suspect]
     Dosage: 500MG UNKNOWN
     Dates: end: 201301
  3. SEROQUEL [Concomitant]
  4. CLONAZEPAM [Concomitant]
  5. ALPRAZOLAM [Concomitant]

REACTIONS (2)
  - Bone marrow failure [Not Recovered/Not Resolved]
  - Neutrophil count decreased [Unknown]
